FAERS Safety Report 4731686-X (Version None)
Quarter: 2005Q3

REPORT INFORMATION
  Report Type: 
  Country: None (occurrence: None)
  Receive Date: 20050725
  Receipt Date: 20050426
  Transmission Date: 20060218
  Serious: Yes (Other)
  Sender: FDA-Public Use
  Company Number: WAES 0504USA05169

PATIENT
  Sex: Female

DRUGS (1)
  1. VIOXX [Suspect]
     Dosage: UNK/UNK/PO
     Route: 048

REACTIONS (2)
  - NONSPECIFIC REACTION [None]
  - SURGERY [None]
